FAERS Safety Report 5836167-8 (Version None)
Quarter: 2008Q3

REPORT INFORMATION
  Report Type: 
  Country: None (occurrence: None)
  Receive Date: 20080805
  Receipt Date: 20080721
  Transmission Date: 20090109
  Serious: No
  Sender: FDA-Public Use
  Company Number: 230682K07USA

PATIENT
  Age: 64 Year
  Sex: Male
  Weight: 58.9676 kg

DRUGS (6)
  1. REBIF [Suspect]
     Indication: MULTIPLE SCLEROSIS
     Dosage: 44 MCG, 3 IN 1 WEEKS, SUBCUTANEOUS
     Route: 058
     Dates: start: 20040722
  2. POLYSPORIN (LIDOSPORIN) [Concomitant]
  3. COREG [Concomitant]
  4. DIURETICS (DIURETICS) [Concomitant]
  5. POTASSIUM (POTASSIUM /00031401/) [Concomitant]
  6. UNSPECIFIED MEDICATION 9ALL OTHER THERAPEUTIC PRODUCTS) [Concomitant]

REACTIONS (1)
  - NO ADVERSE EVENT [None]
